FAERS Safety Report 25448142 (Version 1)
Quarter: 2025Q2

REPORT INFORMATION
  Report Type: Spontaneous
  Country: US (occurrence: US)
  Receive Date: 20250617
  Receipt Date: 20250617
  Transmission Date: 20250716
  Serious: Yes (Other)
  Sender: COOPERSURGICAL
  Company Number: US-COOPERSURGICAL, INC.-2025CPS004795

PATIENT
  Age: 39 Year
  Sex: Female
  Weight: 84.807 kg

DRUGS (1)
  1. PARAGARD T 380A [Suspect]
     Active Substance: COPPER
     Indication: Contraception
     Route: 015
     Dates: start: 20060101

REACTIONS (11)
  - Reproductive complication associated with device [Unknown]
  - Device breakage [Not Recovered/Not Resolved]
  - Foreign body in reproductive tract [Not Recovered/Not Resolved]
  - Complication of device removal [Not Recovered/Not Resolved]
  - Emotional distress [Not Recovered/Not Resolved]
  - Back pain [Recovered/Resolved]
  - Fear [Unknown]
  - Abnormal uterine bleeding [Recovered/Resolved]
  - Dysmenorrhoea [Recovered/Resolved]
  - Discomfort [Recovered/Resolved]
  - Abdominal pain [Recovered/Resolved]

NARRATIVE: CASE EVENT DATE: 20060101
